FAERS Safety Report 11251060 (Version 1)
Quarter: 2015Q3

REPORT INFORMATION
  Report Type: Spontaneous
  Country: US (occurrence: US)
  Receive Date: 20150708
  Receipt Date: 20150708
  Transmission Date: 20151125
  Serious: No
  Sender: FDA-Public Use
  Company Number: US-ELI_LILLY_AND_COMPANY-US201108001073

PATIENT
  Age: 18 Year
  Sex: Female

DRUGS (3)
  1. PROZAC [Suspect]
     Active Substance: FLUOXETINE HYDROCHLORIDE
     Dosage: 1 DF, UNK
  2. PROZAC [Suspect]
     Active Substance: FLUOXETINE HYDROCHLORIDE
     Dosage: 0.5 DF, UNK
  3. PROZAC [Suspect]
     Active Substance: FLUOXETINE HYDROCHLORIDE
     Indication: DEPRESSION
     Dosage: 0.5 DF, UNK
     Dates: start: 201107

REACTIONS (8)
  - Hallucination [Unknown]
  - Back pain [Unknown]
  - Pain [Unknown]
  - Chest pain [Unknown]
  - Agitation [Unknown]
  - Pain in extremity [Unknown]
  - Adverse event [Unknown]
  - Headache [Unknown]
